FAERS Safety Report 15362943 (Version 2)
Quarter: 2018Q3

REPORT INFORMATION
  Report Type: Not Available
  Country: US (occurrence: US)
  Receive Date: 20180907
  Receipt Date: 20180928
  Transmission Date: 20181010
  Serious: No
  Sender: FDA-Public Use
  Company Number: US-NEUROCRINE BIOSCIENCES INC.-2018NBI02660

PATIENT
  Age: 76 Year
  Sex: Female

DRUGS (9)
  1. MIRTAZAPINE. [Concomitant]
     Active Substance: MIRTAZAPINE
     Dosage: AT NIGHT, DOSE UNKNOWN
  2. LEVOTHYROXINE. [Concomitant]
     Active Substance: LEVOTHYROXINE
     Indication: THYROID DISORDER
  3. INGREZZA [Suspect]
     Active Substance: VALBENAZINE
     Dosage: FOR ABOUT 1.5 MONTHS
     Route: 048
     Dates: start: 2018, end: 2018
  4. HALDOL [Concomitant]
     Active Substance: HALOPERIDOL
     Dosage: ONE IN MORNING, ONE AT 2 PM, ONE AT NIGHT
  5. ICAPS [Concomitant]
     Active Substance: MINERALS\VITAMINS
     Indication: MACULAR DEGENERATION
     Dosage: SUPPLEMENT
  6. INGREZZA [Suspect]
     Active Substance: VALBENAZINE
     Route: 048
     Dates: start: 20180822, end: 20180826
  7. INGREZZA [Suspect]
     Active Substance: VALBENAZINE
     Route: 048
     Dates: start: 20180827
  8. INGREZZA [Suspect]
     Active Substance: VALBENAZINE
     Indication: TARDIVE DYSKINESIA
     Route: 048
  9. FISH OIL [Concomitant]
     Active Substance: FISH OIL

REACTIONS (4)
  - Joint dislocation [Recovered/Resolved]
  - Urinary tract infection [Recovered/Resolved]
  - Fall [Recovered/Resolved]
  - Somnolence [Recovered/Resolved]

NARRATIVE: CASE EVENT DATE: 201808
